FAERS Safety Report 21944649 (Version 1)
Quarter: 2023Q1

REPORT INFORMATION
  Report Type: Spontaneous
  Country: PK (occurrence: None)
  Receive Date: 20230201
  Receipt Date: 20230201
  Transmission Date: 20230417
  Serious: Yes (Life-Threatening)
  Sender: FDA-Public Use
  Company Number: None

PATIENT
  Age: 63 Year
  Sex: Male
  Weight: 64 kg

DRUGS (11)
  1. EZETIMIBE\ROSUVASTATIN [Suspect]
     Active Substance: EZETIMIBE\ROSUVASTATIN
     Indication: Hyperlipidaemia
     Dosage: FREQUENCY : AT BEDTIME;?QUANITITY: 10 TABLETS
     Route: 048
  2. ASPIRIN [Concomitant]
     Active Substance: ASPIRIN
  3. CLOPIDOGREL BISULFATE [Concomitant]
     Active Substance: CLOPIDOGREL BISULFATE
  4. BISOPROLOL [Concomitant]
     Active Substance: BISOPROLOL
  5. VALSARTAN [Concomitant]
     Active Substance: VALSARTAN
  6. INSULIN NOS [Concomitant]
     Active Substance: INSULIN NOS
  7. aspart [Concomitant]
  8. METFORMIN [Concomitant]
     Active Substance: METFORMIN HYDROCHLORIDE
  9. Co Q10 enzyme [Concomitant]
  10. NIACIN [Concomitant]
     Active Substance: NIACIN
  11. METHYLCOBALAMIN [Concomitant]
     Active Substance: METHYLCOBALAMIN

REACTIONS (4)
  - Nausea [None]
  - Loss of consciousness [None]
  - Shock [None]
  - Pancreatitis acute [None]

NARRATIVE: CASE EVENT DATE: 20230131
